FAERS Safety Report 14553743 (Version 2)
Quarter: 2018Q4

REPORT INFORMATION
  Report Type: Spontaneous
  Country: DE (occurrence: DE)
  Receive Date: 20180220
  Receipt Date: 20181017
  Transmission Date: 20190204
  Serious: Yes (Other)
  Sender: FDA-Public Use
  Company Number: DE-NAPPMUNDI-GBR-2017-0049735

PATIENT
  Age: 65 Year
  Sex: Female
  Weight: 68 kg

DRUGS (8)
  1. OXYCODONE HYDROCHLORIDE / NALOXONE HYDROCHLORIDE [Suspect]
     Active Substance: NALOXONE HYDROCHLORIDE\OXYCODONE HYDROCHLORIDE
     Dosage: 20 MG/10 MG, BID
     Route: 048
     Dates: start: 201706, end: 201710
  2. OXYCODONE HYDROCHLORIDE / NALOXONE HYDROCHLORIDE [Suspect]
     Active Substance: NALOXONE HYDROCHLORIDE\OXYCODONE HYDROCHLORIDE
     Indication: FIBROMYALGIA
     Dosage: 20 MG/10 MG, BID
     Route: 048
     Dates: start: 201706
  3. VITAMIN D3-HEVERT [Concomitant]
     Dosage: DAILY DOSE: 1 DF DOSAGE FORM EVERY DAY
  4. JODTHYROX [Concomitant]
     Active Substance: LEVOTHYROXINE SODIUM\POTASSIUM IODIDE
     Dosage: 25 MG, DAILY (DAILY DOSE: 25 MG MILLIGRAM(S) EVERY DAY)
  5. THYRONAJOD [Concomitant]
     Active Substance: LEVOTHYROXINE SODIUM\POTASSIUM IODIDE
     Dosage: 50 MG, DAILY
     Route: 048
  6. VITAMIN D3-HEVERT [Concomitant]
     Indication: OSTEOPOROSIS
     Dosage: 1 DF, DAILY
     Route: 048
  7. OXYCODONE HYDROCHLORIDE / NALOXONE HYDROCHLORIDE [Suspect]
     Active Substance: NALOXONE HYDROCHLORIDE\OXYCODONE HYDROCHLORIDE
     Indication: PAIN
     Dosage: 20/10MG, TID
     Route: 048
     Dates: start: 20170917, end: 20170927
  8. MACROGOL HEXAL PLUS [Concomitant]
     Indication: CONSTIPATION
     Dosage: 1 DF, DAILY
     Route: 048

REACTIONS (15)
  - Urinary incontinence [Recovered/Resolved]
  - Therapeutic response decreased [Recovered/Resolved]
  - Urinary incontinence [Recovered/Resolved]
  - Pyrexia [Recovered/Resolved]
  - Seizure [Recovered/Resolved]
  - Tremor [Recovered/Resolved]
  - Lymphadenopathy [Recovered/Resolved]
  - Pyrexia [Recovered/Resolved]
  - Hot flush [Recovered/Resolved]
  - Nausea [Recovered/Resolved]
  - Asthenia [Not Recovered/Not Resolved]
  - Nausea [Recovered/Resolved]
  - Incorrect product administration duration [Unknown]
  - Hyperhidrosis [Recovered/Resolved]
  - Chills [Recovered/Resolved]

NARRATIVE: CASE EVENT DATE: 201709
